FAERS Safety Report 5621544-0 (Version None)
Quarter: 2008Q1

REPORT INFORMATION
  Report Type: 
  Country: None (occurrence: None)
  Receive Date: 20080211
  Receipt Date: 20080206
  Transmission Date: 20080703
  Serious: Yes (Death, Hospitalization)
  Sender: FDA-Public Use
  Company Number: DE-BRISTOL-MYERS SQUIBB COMPANY-14069900

PATIENT
  Age: 66 Year
  Sex: Male

DRUGS (2)
  1. ERBITUX [Suspect]
     Indication: COLON CANCER METASTATIC
     Dosage: 1 IN 1 ONCE
     Route: 042
     Dates: start: 20071001, end: 20071001
  2. TAVEGIL [Concomitant]
     Route: 042

REACTIONS (3)
  - ANAPHYLACTIC SHOCK [None]
  - HAEMODIALYSIS [None]
  - RENAL FAILURE ACUTE [None]
